FAERS Safety Report 8947243 (Version 1)
Quarter: 2012Q4

REPORT INFORMATION
  Report Type: 
  Country: US (occurrence: US)
  Receive Date: 20121205
  Receipt Date: 20121205
  Transmission Date: 20130627
  Serious: Yes (Hospitalization, Other)
  Sender: FDA-Public Use
  Company Number: US-PFIZER INC-2012301777

PATIENT
  Age: 54 Year
  Sex: Male

DRUGS (3)
  1. EPINEPHRINE [Suspect]
     Indication: ANAPHYLAXIS
     Dosage: 0.3 mg, UNK
     Route: 030
  2. DIPHENHYDRAMINE [Concomitant]
     Indication: ANAPHYLAXIS
     Dosage: UNK
     Route: 048
  3. DEXAMETHASONE [Concomitant]
     Indication: ANAPHYLAXIS
     Dosage: UNK
     Route: 048

REACTIONS (2)
  - Acute myocardial infarction [Unknown]
  - Arteriospasm coronary [Unknown]
